FAERS Safety Report 9010795 (Version 3)
Quarter: 2013Q1

REPORT INFORMATION
  Report Type: Spontaneous
  Country: US (occurrence: US)
  Receive Date: 20130109
  Receipt Date: 20130228
  Transmission Date: 20140127
  Serious: No
  Sender: FDA-Public Use
  Company Number: US-ASTELLAS-2013US000136

PATIENT
  Sex: Female
  Weight: 70 kg

DRUGS (15)
  1. VESICARE [Suspect]
     Indication: HYPERTONIC BLADDER
     Dosage: 10 MG, UID/QD
     Route: 048
     Dates: start: 201212, end: 201212
  2. FOLIC ACID [Concomitant]
     Indication: METABOLIC DISORDER
     Dosage: 800 MG, UID/QD
     Route: 048
     Dates: start: 2008
  3. BIOTIN [Concomitant]
     Indication: SUPPLEMENTATION THERAPY
     Dosage: 5000 MG, BID
     Route: 048
     Dates: start: 2009
  4. ODORLESS GARLIC [Concomitant]
     Indication: PHYTOTHERAPY
     Dosage: 1000 MG, BID
     Route: 048
     Dates: start: 2008
  5. ACIDOPHILUS [Concomitant]
     Indication: DYSPEPSIA
     Dosage: 10 MG, UID/QD
     Route: 048
     Dates: start: 2010
  6. CALCIUM + VITAMIN D                /01483701/ [Concomitant]
     Indication: VITAMIN SUPPLEMENTATION
     Dosage: 600 MG, BID
     Route: 048
     Dates: start: 2008
  7. MULTIVITAMINS [Concomitant]
     Indication: VITAMIN SUPPLEMENTATION
     Dosage: UNK
     Route: 048
     Dates: start: 2008
  8. ACETYLCARNITINE HYDROCHLORIDE [Concomitant]
     Indication: VITAMIN SUPPLEMENTATION
     Dosage: 600 MG, BID
     Route: 048
     Dates: start: 2009
  9. GINKGO BILOBA [Concomitant]
     Indication: PHYTOTHERAPY
     Dosage: 1200 MG, UID/QD
     Route: 048
     Dates: start: 2009
  10. CALCIUM MAGNESIUM ZINC [Concomitant]
     Indication: VITAMIN SUPPLEMENTATION
     Dosage: 600 MG, BID
     Route: 048
     Dates: start: 2009
  11. HYDROCODONE [Concomitant]
     Indication: BACK PAIN
     Dosage: 10650 MG, BID
     Route: 048
     Dates: start: 2001
  12. CITALOPRAM [Concomitant]
     Indication: DEPRESSION
     Dosage: 10650 MG, UID/QD
     Route: 048
  13. FISH OIL [Concomitant]
     Indication: CARDIAC DISORDER
     Dosage: 1200 MG, BID
     Route: 048
     Dates: start: 2008
  14. VITAMIN D3 [Concomitant]
     Indication: VITAMIN SUPPLEMENTATION
     Dosage: ONCE
     Route: 065
     Dates: start: 2009
  15. ASPIRIN [Concomitant]
     Indication: CEREBROVASCULAR ACCIDENT
     Dosage: UNK
     Route: 065

REACTIONS (1)
  - Dry mouth [Recovered/Resolved]
